FAERS Safety Report 20952770 (Version 1)
Quarter: 2022Q2

REPORT INFORMATION
  Report Type: Spontaneous
  Country: US (occurrence: US)
  Receive Date: 20220613
  Receipt Date: 20220613
  Transmission Date: 20220721
  Serious: Yes (Other)
  Sender: FDA-Public Use
  Company Number: US-SA-SAC20220609001191

PATIENT
  Age: 62 Year
  Sex: Male

DRUGS (1)
  1. ZANTAC [Suspect]
     Active Substance: RANITIDINE HYDROCHLORIDE
     Indication: Gastrooesophageal reflux disease
     Dosage: 150 MG;FREQUENCY: OTHER
     Dates: start: 199106, end: 201406

REACTIONS (2)
  - Squamous cell carcinoma of skin [Unknown]
  - Prostate cancer [Unknown]

NARRATIVE: CASE EVENT DATE: 20080606
